FAERS Safety Report 6529034-8 (Version None)
Quarter: 2009Q4

REPORT INFORMATION
  Report Type: 
  Country: None (occurrence: None)
  Receive Date: 20091229
  Receipt Date: 20091214
  Transmission Date: 20100525
  Serious: Yes (Hospitalization)
  Sender: FDA-Public Use
  Company Number: 2009AP005051

PATIENT
  Age: 70 Year
  Sex: Male

DRUGS (2)
  1. LAMOTRIGINE [Suspect]
     Indication: EPILEPSY
     Dosage: 200 MG;BID
  2. VALPROATE SODIUM [Concomitant]

REACTIONS (11)
  - ACTIVITIES OF DAILY LIVING IMPAIRED [None]
  - ATAXIA [None]
  - CONFUSIONAL STATE [None]
  - GASTROINTESTINAL ULCER HAEMORRHAGE [None]
  - HEADACHE [None]
  - MEDICATION ERROR [None]
  - MOBILITY DECREASED [None]
  - NYSTAGMUS [None]
  - TREMOR [None]
  - VISION BLURRED [None]
  - WRONG DRUG ADMINISTERED [None]
